FAERS Safety Report 20167804 (Version 2)
Quarter: 2025Q2

REPORT INFORMATION
  Report Type: Spontaneous
  Country: US (occurrence: US)
  Receive Date: 20211210
  Receipt Date: 20250625
  Transmission Date: 20250717
  Serious: Yes (Other)
  Sender: AUROBINDO
  Company Number: US-MLMSERVICE-20211126-3240164-1

PATIENT
  Age: 82 Year
  Sex: Male

DRUGS (2)
  1. PREDNISONE [Suspect]
     Active Substance: PREDNISONE
     Indication: Thrombotic thrombocytopenic purpura
     Route: 065
  2. IVERMECTIN [Suspect]
     Active Substance: IVERMECTIN
     Indication: Product used for unknown indication
     Route: 065

REACTIONS (5)
  - Duodenitis [Recovering/Resolving]
  - Erosive oesophagitis [Recovering/Resolving]
  - Gastritis [Recovering/Resolving]
  - Colitis [Recovering/Resolving]
  - Strongyloidiasis [Recovering/Resolving]
